FAERS Safety Report 9089579 (Version 1)
Quarter: 2013Q1

REPORT INFORMATION
  Report Type: Report from Study
  Country: US (occurrence: US)
  Receive Date: 20130218
  Receipt Date: 20130218
  Transmission Date: 20140127
  Serious: No
  Sender: FDA-Public Use
  Company Number: US-ABBOTT-12P-163-0922090-00

PATIENT
  Age: 47 Year
  Sex: Female

DRUGS (2)
  1. SIMCOR 1000MG/20MG [Suspect]
     Indication: PRODUCT USED FOR UNKNOWN INDICATION
     Dosage: 1000/20MG AT BED TIME
     Route: 048
  2. UNKNOWN MULTIPLE MEDICATIONS [Concomitant]
     Indication: RHEUMATOID ARTHRITIS

REACTIONS (1)
  - Flushing [Recovered/Resolved]
